FAERS Safety Report 17763537 (Version 1)
Quarter: 2020Q2

REPORT INFORMATION
  Report Type: Spontaneous
  Country: ES (occurrence: ES)
  Receive Date: 20200509
  Receipt Date: 20200509
  Transmission Date: 20200714
  Serious: Yes (Hospitalization)
  Sender: FDA-Public Use
  Company Number: ES-TEVA-2020-ES-1232935

PATIENT
  Age: 58 Year
  Sex: Male

DRUGS (5)
  1. HIDROXICLOROQUINA (2143A) [Suspect]
     Active Substance: HYDROXYCHLOROQUINE
     Indication: PNEUMONIA
  2. CEFTAZIDIMA (189A) [Suspect]
     Active Substance: CEFTAZIDIME
     Dosage: 2GR/8H
     Route: 042
     Dates: start: 20200407, end: 20200409
  3. AMOXICILINA / ACIDO CLAVULANICO [Suspect]
     Active Substance: AMOXICILLIN\CLAVULANIC ACID
     Indication: CORONAVIRUS INFECTION
     Dosage: 1 GR /8H
     Route: 042
     Dates: start: 20200331, end: 20200406
  4. HIDROXICLOROQUINA (2143A) [Suspect]
     Active Substance: HYDROXYCHLOROQUINE
     Indication: CORONAVIRUS INFECTION
     Dosage: 400 MG DAY
     Route: 048
     Dates: start: 20200318, end: 20200324
  5. ENOXAPARINA (2482A) [Suspect]
     Active Substance: ENOXAPARIN
     Dosage: 80 MG DAY
     Route: 058
     Dates: start: 20200318, end: 20200414

REACTIONS (2)
  - Hyperbilirubinaemia [Not Recovered/Not Resolved]
  - Hepatitis [Recovered/Resolved]

NARRATIVE: CASE EVENT DATE: 20200408
